FAERS Safety Report 17010671 (Version 1)
Quarter: 2019Q4

REPORT INFORMATION
  Report Type: Spontaneous
  Country: CZ (occurrence: CZ)
  Receive Date: 20191108
  Receipt Date: 20191108
  Transmission Date: 20200122
  Serious: Yes (Other)
  Sender: FDA-Public Use
  Company Number: CZ-GE HEALTHCARE LIFE SCIENCES-2019CSU005602

PATIENT

DRUGS (14)
  1. MAGNEVIST [Suspect]
     Active Substance: GADOPENTETATE DIMEGLUMINE
     Indication: MAGNETIC RESONANCE IMAGING
     Dosage: 140 ML TOTAL, IN 14 ADMINISTRATIONS
     Route: 065
  2. MULTIHANCE [Suspect]
     Active Substance: GADOBENATE DIMEGLUMINE
     Indication: GLIOBLASTOMA MULTIFORME
  3. GADOVIST [Suspect]
     Active Substance: GADOBUTROL
     Indication: GLIOBLASTOMA MULTIFORME
  4. MAGNEVIST [Suspect]
     Active Substance: GADOPENTETATE DIMEGLUMINE
     Indication: GLIOBLASTOMA MULTIFORME
  5. OMNISCAN [Suspect]
     Active Substance: GADODIAMIDE
     Indication: GLIOBLASTOMA MULTIFORME
  6. DOTAREM [Suspect]
     Active Substance: GADOTERATE MEGLUMINE
     Indication: MAGNETIC RESONANCE IMAGING
     Dosage: 83 ML TOTAL, IN 6 ADMINISTRATIONS
     Route: 065
  7. GADOLINIUM (UNSPECIFIED) [Suspect]
     Active Substance: GADOLINIUM
     Indication: MAGNETIC RESONANCE IMAGING
     Dosage: 20 ML TOTAL, IN 2 ADMINISTRATIONS
     Route: 065
  8. DOTAREM [Suspect]
     Active Substance: GADOTERATE MEGLUMINE
     Indication: GLIOBLASTOMA MULTIFORME
  9. GADOVIST [Suspect]
     Active Substance: GADOBUTROL
     Indication: MAGNETIC RESONANCE IMAGING
     Dosage: 112 ML TOTAL, IN 10 ADMINISTRATIONS
     Route: 065
  10. OMNISCAN [Suspect]
     Active Substance: GADODIAMIDE
     Indication: MAGNETIC RESONANCE IMAGING
     Dosage: 110 ML TOTAL, IN 10 ADMINISTRATIONS
     Route: 065
  11. GADOLINIUM (UNSPECIFIED) [Suspect]
     Active Substance: GADOLINIUM
     Indication: GLIOBLASTOMA MULTIFORME
  12. MULTIHANCE [Suspect]
     Active Substance: GADOBENATE DIMEGLUMINE
     Indication: MAGNETIC RESONANCE IMAGING
     Dosage: 216 ML TOTAL, IN 22 ADMINISTRATIONS
     Route: 065
  13. PROHANCE [Suspect]
     Active Substance: GADOTERIDOL
     Indication: MAGNETIC RESONANCE IMAGING
     Dosage: 19 ML TOTAL, IN 2 ADMINISTRATIONS
     Route: 065
  14. PROHANCE [Suspect]
     Active Substance: GADOTERIDOL
     Indication: GLIOBLASTOMA MULTIFORME

REACTIONS (2)
  - No adverse event [Recovered/Resolved]
  - Magnetic resonance imaging brain abnormal [Recovered/Resolved]
